FAERS Safety Report 11375429 (Version 1)
Quarter: 2015Q3

REPORT INFORMATION
  Report Type: Spontaneous
  Country: PT (occurrence: PT)
  Receive Date: 20150813
  Receipt Date: 20150813
  Transmission Date: 20151125
  Serious: Yes (Other)
  Sender: FDA-Public Use
  Company Number: PT-JNJFOC-20150806129

PATIENT
  Age: 50 Year
  Sex: Female

DRUGS (1)
  1. REMICADE [Suspect]
     Active Substance: INFLIXIMAB
     Indication: CROHN^S DISEASE
     Route: 042
     Dates: start: 20080903, end: 20150706

REACTIONS (1)
  - Lupus-like syndrome [Recovered/Resolved]

NARRATIVE: CASE EVENT DATE: 20150706
